FAERS Safety Report 8373291-2 (Version None)
Quarter: 2012Q2

REPORT INFORMATION
  Report Type: 
  Country: None (occurrence: None)
  Receive Date: 20120521
  Receipt Date: 20110609
  Transmission Date: 20120825
  Serious: Yes (Other)
  Sender: FDA-Public Use
  Company Number: US-TEVA-2011001933

PATIENT
  Sex: Male
  Weight: 121.67 kg

DRUGS (4)
  1. AMITRIPTYLINE HCL [Concomitant]
  2. VITAMIN B-12 [Concomitant]
  3. TREANDA [Suspect]
     Indication: NON-HODGKIN'S LYMPHOMA
     Route: 042
     Dates: start: 20110215
  4. FISH OIL [Concomitant]

REACTIONS (2)
  - OEDEMA PERIPHERAL [None]
  - EXTRAVASATION [None]
